FAERS Safety Report 10178653 (Version 1)
Quarter: 2014Q2

REPORT INFORMATION
  Report Type: Spontaneous
  Country: CA (occurrence: None)
  Receive Date: 20140516
  Receipt Date: 20140516
  Transmission Date: 20141212
  Serious: Yes (Hospitalization)
  Sender: FDA-Public Use
  Company Number: None

PATIENT
  Age: 14 Year
  Sex: Female
  Weight: 64.7 kg

DRUGS (6)
  1. MERCAPTOPURINE [Suspect]
     Dates: start: 20140504
  2. METHOTREXATE [Suspect]
     Dates: start: 20140428
  3. PREDNISONE [Suspect]
     Dates: start: 20140502
  4. VINCRISTINE SULFATE [Suspect]
     Dates: start: 20140428
  5. CEFTRIAXONE [Concomitant]
  6. SEPTRA [Concomitant]

REACTIONS (13)
  - Urosepsis [None]
  - Bacteraemia [None]
  - Febrile neutropenia [None]
  - Dyspnoea [None]
  - Malaise [None]
  - Cough [None]
  - Heart rate increased [None]
  - Hypotension [None]
  - Wheezing [None]
  - Crepitations [None]
  - Bradycardia [None]
  - Aspergillus infection [None]
  - Influenza B virus test positive [None]
